FAERS Safety Report 19130405 (Version 1)
Quarter: 2021Q2

REPORT INFORMATION
  Report Type: Spontaneous
  Country: NZ (occurrence: NZ)
  Receive Date: 20210413
  Receipt Date: 20210413
  Transmission Date: 20210717
  Serious: Yes (Other)
  Sender: FDA-Public Use
  Company Number: NZ-PFIZER INC-2021350894

PATIENT
  Age: 70 Year
  Sex: Male

DRUGS (5)
  1. DILANTIN [Suspect]
     Active Substance: PHENYTOIN
     Dosage: 370 MG
  2. DILANTIN [Suspect]
     Active Substance: PHENYTOIN
     Indication: EPILEPSY
     Dosage: 100 MG
  3. DILANTIN [Suspect]
     Active Substance: PHENYTOIN
     Dosage: REDUCED BY 190MG
  4. DILANTIN [Suspect]
     Active Substance: PHENYTOIN
     Dosage: CHANGE TO THE LEVEL OF THE PHENYTOIN, INITIALLY BY 100MG
  5. DILANTIN [Suspect]
     Active Substance: PHENYTOIN
     Dosage: REDUCED BY 30MG, AND ANOTHER AND ANOTHER

REACTIONS (3)
  - Deafness [Unknown]
  - Intentional product misuse [Unknown]
  - Drug ineffective [Unknown]
